FAERS Safety Report 22600773 (Version 2)
Quarter: 2023Q2

REPORT INFORMATION
  Report Type: Spontaneous
  Country: RU (occurrence: RU)
  Receive Date: 20230614
  Receipt Date: 20230622
  Transmission Date: 20230721
  Serious: Yes (Other)
  Sender: FDA-Public Use
  Company Number: RU-SUN PHARMACEUTICAL INDUSTRIES LTD-2023R1-392619

PATIENT
  Age: 49 Year
  Sex: Female
  Weight: 74 kg

DRUGS (1)
  1. AMOXICILLIN\CLARITHROMYCIN\OMEPRAZOLE [Suspect]
     Active Substance: AMOXICILLIN\CLARITHROMYCIN\OMEPRAZOLE
     Indication: Product used for unknown indication
     Dosage: UNK
     Route: 065

REACTIONS (4)
  - Helicobacter infection [Recovered/Resolved]
  - Chronic gastritis [Recovered/Resolved]
  - Dysgeusia [Unknown]
  - Intestinal metaplasia [Recovered/Resolved]

NARRATIVE: CASE EVENT DATE: 20230327
